FAERS Safety Report 7892544-5 (Version None)
Quarter: 2011Q4

REPORT INFORMATION
  Report Type: 
  Country: None (occurrence: None)
  Receive Date: 20111104
  Receipt Date: 20111026
  Transmission Date: 20120403
  Serious: Yes (Other)
  Sender: FDA-Public Use
  Company Number: US-JNJFOC-20110906970

PATIENT
  Sex: Female
  Weight: 63.96 kg

DRUGS (15)
  1. CATAPRES [Concomitant]
     Indication: ILL-DEFINED DISORDER
     Dates: start: 20110912
  2. MAALOX PLUS [Concomitant]
     Indication: ILL-DEFINED DISORDER
     Dates: start: 20110912
  3. ZOFRAN [Concomitant]
     Indication: ILL-DEFINED DISORDER
     Dates: start: 20110912
  4. PHENERGAN HCL [Concomitant]
     Indication: ILL-DEFINED DISORDER
     Dates: start: 20110912
  5. EPINEPHRINE [Concomitant]
     Indication: ILL-DEFINED DISORDER
     Dates: start: 20110912
  6. DILAUDID [Concomitant]
     Indication: ILL-DEFINED DISORDER
     Dates: start: 20110912
  7. VASOTEC [Concomitant]
     Indication: ILL-DEFINED DISORDER
     Dates: start: 20110912
  8. OXYCONTIN [Concomitant]
     Indication: ILL-DEFINED DISORDER
     Dates: start: 20110912
  9. XARELTO [Suspect]
     Indication: KNEE ARTHROPLASTY
     Route: 048
     Dates: start: 20110912, end: 20110914
  10. ULTRAM [Suspect]
     Indication: ILL-DEFINED DISORDER
     Route: 048
     Dates: start: 20110912
  11. METAMUCIL-2 [Concomitant]
     Indication: ILL-DEFINED DISORDER
     Dates: start: 20110912
  12. TYLENOL-500 [Suspect]
     Indication: ILL-DEFINED DISORDER
     Route: 048
     Dates: start: 20110912
  13. NARCAN [Concomitant]
     Indication: ILL-DEFINED DISORDER
     Dates: start: 20110912
  14. AMBIEN [Concomitant]
     Indication: ILL-DEFINED DISORDER
     Dates: start: 20110912
  15. MIRALAX [Concomitant]
     Indication: ILL-DEFINED DISORDER
     Dates: start: 20110912

REACTIONS (1)
  - PULMONARY EMBOLISM [None]
